FAERS Safety Report 10471748 (Version 1)
Quarter: 2014Q3

REPORT INFORMATION
  Report Type: Spontaneous
  Country: NL (occurrence: NL)
  Receive Date: 20140923
  Receipt Date: 20140923
  Transmission Date: 20150326
  Serious: Yes (Other)
  Sender: FDA-Public Use
  Company Number: PHHY2014NL122549

PATIENT
  Sex: Male

DRUGS (1)
  1. LOSARTAN SANDOZ [Suspect]
     Active Substance: LOSARTAN

REACTIONS (1)
  - Aortic aneurysm [Unknown]
